FAERS Safety Report 11151756 (Version 2)
Quarter: 2015Q3

REPORT INFORMATION
  Report Type: Spontaneous
  Country: US (occurrence: US)
  Receive Date: 20150601
  Receipt Date: 20150807
  Transmission Date: 20151125
  Serious: No
  Sender: FDA-Public Use
  Company Number: US-AMGEN-USASL2015050851

PATIENT
  Age: 64 Year
  Sex: Female

DRUGS (2)
  1. SULFASALAZINE. [Concomitant]
     Active Substance: SULFASALAZINE
     Dosage: UNK
  2. ENBREL [Suspect]
     Active Substance: ETANERCEPT
     Indication: PSORIATIC ARTHROPATHY
     Dosage: 50 MG, QWK
     Route: 065
     Dates: start: 20150416

REACTIONS (10)
  - Fatigue [Unknown]
  - Immune system disorder [Unknown]
  - No therapeutic response [Not Recovered/Not Resolved]
  - Muscle spasms [Unknown]
  - Abnormal loss of weight [Unknown]
  - Nervousness [Unknown]
  - Dyspnoea [Unknown]
  - Retinal scar [Unknown]
  - Injection site pain [Not Recovered/Not Resolved]
  - Injection site bruising [Unknown]

NARRATIVE: CASE EVENT DATE: 2015
